FAERS Safety Report 7222566-9 (Version None)
Quarter: 2011Q1

REPORT INFORMATION
  Report Type: 
  Country: None (occurrence: None)
  Receive Date: 20110112
  Receipt Date: 20110111
  Transmission Date: 20110831
  Serious: No
  Sender: FDA-Public Use
  Company Number: B0692261A

PATIENT
  Age: 50 Year
  Sex: Female

DRUGS (1)
  1. ALLI [Suspect]
     Dosage: 180MG PER DAY
     Route: 048
     Dates: start: 20101001, end: 20101101

REACTIONS (1)
  - METRORRHAGIA [None]
